FAERS Safety Report 22235282 (Version 1)
Quarter: 2023Q2

REPORT INFORMATION
  Report Type: Spontaneous
  Country: US (occurrence: None)
  Receive Date: 20230419
  Receipt Date: 20230419
  Transmission Date: 20230722
  Serious: Yes (Other)
  Sender: FDA-Public Use
  Company Number: None

PATIENT
  Age: 53 Year
  Sex: Male

DRUGS (13)
  1. AMBRISENTAN [Suspect]
     Active Substance: AMBRISENTAN
     Indication: Pulmonary arterial hypertension
     Dosage: FREQUENCY : DAILY;?
     Route: 048
     Dates: start: 20171107
  2. TADALAFIL [Concomitant]
     Active Substance: TADALAFIL
  3. ALBUTEROL SULFATE [Concomitant]
     Active Substance: ALBUTEROL SULFATE
  4. GENVOYA [Concomitant]
     Active Substance: COBICISTAT\ELVITEGRAVIR\EMTRICITABINE\TENOFOVIR ALAFENAMIDE FUMARATE
  5. NORCO [Concomitant]
     Active Substance: ACETAMINOPHEN\HYDROCODONE BITARTRATE
  6. METFORMIN [Concomitant]
     Active Substance: METFORMIN HYDROCHLORIDE
  7. SPIRONOLACTONE [Concomitant]
     Active Substance: SPIRONOLACTONE
  8. STIOLTO RESPIMAT [Concomitant]
     Active Substance: OLODATEROL HYDROCHLORIDE\TIOTROPIUM BROMIDE MONOHYDRATE
  9. LIDOCAINE PATCH [Concomitant]
     Active Substance: LIDOCAINE
  10. TORSEMIDE [Concomitant]
     Active Substance: TORSEMIDE
  11. BUPROPION [Concomitant]
     Active Substance: BUPROPION
  12. FAMOTIDINE [Concomitant]
     Active Substance: FAMOTIDINE
  13. DICLOFENAC TOP GEL [Concomitant]

REACTIONS (4)
  - Cellulitis [None]
  - Dyspnoea [None]
  - Chest pain [None]
  - Agitation [None]

NARRATIVE: CASE EVENT DATE: 20230304
